FAERS Safety Report 14859392 (Version 1)
Quarter: 2018Q2

REPORT INFORMATION
  Report Type: Report from Study
  Country: DE (occurrence: DE)
  Receive Date: 20180508
  Receipt Date: 20180508
  Transmission Date: 20180711
  Serious: Yes (Other)
  Sender: FDA-Public Use
  Company Number: DE-INCYTE CORPORATION-2015IN002176

PATIENT

DRUGS (26)
  1. INCB018424 [Suspect]
     Active Substance: RUXOLITINIB
     Indication: MYELOFIBROSIS
     Dosage: 20 MG, QD (2 DF PER DAY)
     Route: 048
     Dates: start: 20130516, end: 20130620
  2. MOVICOL                            /08437601/ [Concomitant]
     Indication: CONSTIPATION PROPHYLAXIS
     Dosage: UNK UNK, QD
     Route: 065
     Dates: start: 20150504
  3. CIPROFLOXACIN. [Concomitant]
     Active Substance: CIPROFLOXACIN
     Indication: SEPSIS
     Dosage: UNK
     Route: 065
     Dates: start: 20140414, end: 20140417
  4. NORFLOXACIN [Concomitant]
     Active Substance: NORFLOXACIN
     Indication: URINARY TRACT INFECTION
     Dosage: 400 MG, UNK
     Route: 065
     Dates: start: 20150727, end: 20150805
  5. INCB018424 [Suspect]
     Active Substance: RUXOLITINIB
     Dosage: 15 MG, QD (2 DF PER DAY)
     Route: 048
     Dates: start: 20130620, end: 20140417
  6. ACTRAPID [Concomitant]
     Active Substance: INSULIN HUMAN
     Indication: DIABETES MELLITUS
     Dosage: UNK UNK, QD
     Route: 065
     Dates: start: 20150504
  7. KYTTA-SEDATIVUM F [Concomitant]
     Indication: RESTLESSNESS
     Dosage: 1 DF, QD
     Route: 065
     Dates: end: 20150503
  8. INEGY [Concomitant]
     Active Substance: EZETIMIBE\SIMVASTATIN
     Indication: LIPID METABOLISM DISORDER
     Dosage: 1 DF, QD
     Route: 065
     Dates: end: 20150503
  9. ZOPICLONE [Concomitant]
     Active Substance: ZOPICLONE
     Indication: SLEEP DISORDER
     Dosage: 7.5 MG, QD
     Dates: start: 20121119
  10. BLOPRESS [Concomitant]
     Active Substance: CANDESARTAN CILEXETIL
     Indication: HYPERTENSION
     Dosage: 16 MG, QD
     Route: 065
     Dates: end: 20150503
  11. LANTUS [Concomitant]
     Active Substance: INSULIN GLARGINE
     Indication: DIABETES MELLITUS
     Dosage: 64 IU, QD
     Route: 065
  12. TAMSULOSIN [Concomitant]
     Active Substance: TAMSULOSIN
     Indication: PROSTATE CANCER
     Dosage: 0.4 MG, UNK
     Route: 065
     Dates: start: 20150504
  13. AMLOBETA BESILAT [Concomitant]
     Indication: HYPERTENSION
     Dosage: 5 MG, QD
     Route: 065
  14. ALLOPURINOL. [Concomitant]
     Active Substance: ALLOPURINOL
     Indication: HYPERURICAEMIA
     Dosage: 100 MG, QD
     Route: 065
     Dates: end: 20150503
  15. BISOPROLOL [Concomitant]
     Active Substance: BISOPROLOL
     Indication: HYPERTENSION
     Dosage: 5 MG, QD
     Route: 065
     Dates: start: 20150504
  16. CEFAZOLINE [Concomitant]
     Active Substance: CEFAZOLIN SODIUM
     Indication: SEPSIS
     Route: 065
     Dates: start: 20140422, end: 20140427
  17. TOREM [Concomitant]
     Active Substance: TORSEMIDE
     Indication: RENAL FAILURE
     Dosage: 100 MG, QD
     Route: 065
     Dates: end: 20150503
  18. OMACOR [Concomitant]
     Active Substance: OMEGA-3-ACID ETHYL ESTERS
     Indication: LIPID METABOLISM DISORDER
     Dosage: 2 G, QD
     Route: 065
     Dates: end: 20150503
  19. IMIPENEM [Concomitant]
     Active Substance: IMIPENEM
     Indication: SEPSIS
     Dosage: UNK
     Route: 065
     Dates: start: 20140417, end: 20140422
  20. CANDESARTAN. [Concomitant]
     Active Substance: CANDESARTAN
     Indication: HYPERTENSION
     Dosage: 8 MG, QD
     Route: 065
     Dates: start: 20150504
  21. INCB018424 [Suspect]
     Active Substance: RUXOLITINIB
     Dosage: 20 MG, QD (2 DF PER DAY)
     Route: 048
     Dates: start: 20150505, end: 20150531
  22. INCB018424 [Suspect]
     Active Substance: RUXOLITINIB
     Dosage: 30 MG, UNK
     Route: 048
     Dates: start: 20150601
  23. MAREEN [Concomitant]
     Indication: RESTLESSNESS
     Dosage: 37.5 MG, QD
     Route: 065
     Dates: end: 20150503
  24. VITAMIN D3 [Concomitant]
     Active Substance: CHOLECALCIFEROL
     Indication: VITAMIN SUPPLEMENTATION
     Dosage: 1000 U, QD
     Route: 065
     Dates: end: 20150503
  25. ASPIRIN PROTECT EC [Concomitant]
     Active Substance: ASPIRIN
     Indication: CARDIAC FAILURE
     Dosage: 10 MG, QD
     Route: 065
  26. CONCOR COR [Concomitant]
     Active Substance: BISOPROLOL FUMARATE
     Indication: CARDIAC FAILURE
     Dosage: 10 MG, QD
     Route: 065
     Dates: end: 20150503

REACTIONS (5)
  - Blood lactate dehydrogenase increased [Not Recovered/Not Resolved]
  - White blood cell count increased [Unknown]
  - Lymphocyte count decreased [Unknown]
  - Platelet count increased [Unknown]
  - Myelofibrosis [Not Recovered/Not Resolved]

NARRATIVE: CASE EVENT DATE: 20150504
